FAERS Safety Report 8607591-5 (Version None)
Quarter: 2012Q3

REPORT INFORMATION
  Report Type: 
  Country: None (occurrence: None)
  Receive Date: 20120821
  Receipt Date: 20120807
  Transmission Date: 20120928
  Serious: Yes (Disabling)
  Sender: FDA-Public Use
  Company Number: FR-MYLANLABS-2012S1016121

PATIENT
  Age: 56 Year
  Sex: Male

DRUGS (3)
  1. OFLOXACIN [Suspect]
     Route: 048
     Dates: start: 20111006
  2. PREDNISOLONE [Suspect]
     Indication: PROPHYLAXIS OF NAUSEA AND VOMITING
     Route: 048
     Dates: start: 20110927
  3. PRAVASTATIN [Suspect]
     Indication: HYPERCHOLESTEROLAEMIA
     Route: 048

REACTIONS (1)
  - TENDON RUPTURE [None]
